FAERS Safety Report 5118255-7 (Version None)
Quarter: 2006Q4

REPORT INFORMATION
  Report Type: 
  Country: None (occurrence: None)
  Receive Date: 20061002
  Receipt Date: 20060717
  Transmission Date: 20070319
  Serious: No
  Sender: FDA-Public Use
  Company Number: US-BRISTOL-MYERS SQUIBB COMPANY-13444401

PATIENT
  Age: 64 Year
  Sex: Female
  Weight: 113 kg

DRUGS (3)
  1. ORENCIA [Suspect]
     Indication: RHEUMATOID ARTHRITIS
     Route: 042
  2. TYLENOL [Concomitant]
  3. PREDNISONE [Concomitant]

REACTIONS (1)
  - DRUG ADMINISTRATION ERROR [None]
